FAERS Safety Report 4341982-6 (Version None)
Quarter: 2004Q1

REPORT INFORMATION
  Report Type: 
  Country: None (occurrence: None)
  Receive Date: 20040329
  Receipt Date: 20031231
  Transmission Date: 20041129
  Serious: No
  Sender: FDA-Public Use
  Company Number: 03P-163-0246091-00

PATIENT
  Age: 42 Year
  Sex: Female

DRUGS (8)
  1. HUMIRA [Suspect]
     Indication: RHEUMATOID ARTHRITIS
     Dosage: 40 MG, 1 IN 2 WK, SUBCUTANEOUS
     Route: 058
     Dates: start: 20030901
  2. GLUCOPHAGE XR [Concomitant]
  3. METHOTREXATE [Concomitant]
  4. ROFECOXIB [Concomitant]
  5. FOLIC ACID [Concomitant]
  6. ALPRAZOLAM [Concomitant]
  7. EUGYNON [Concomitant]
  8. ASA (BABY) [Concomitant]

REACTIONS (2)
  - DRUG INEFFECTIVE [None]
  - JOINT SWELLING [None]
